FAERS Safety Report 8869222 (Version 1)
Quarter: 2012Q4

REPORT INFORMATION
  Report Type: 
  Country: US (occurrence: US)
  Receive Date: 20121023
  Receipt Date: 20121023
  Transmission Date: 20130627
  Serious: No
  Sender: FDA-Public Use
  Company Number: US-AMGEN-USASP2012054248

PATIENT
  Age: 59 Year
  Sex: Female
  Weight: 99.77 kg

DRUGS (11)
  1. ENBREL [Suspect]
     Indication: PRODUCT USED FOR UNKNOWN INDICATION
     Dosage: 50 mg, qwk
     Route: 058
  2. PLAQUENIL                          /00072602/ [Concomitant]
     Dosage: 20 mg, UNK
  3. AMBIEN [Concomitant]
     Dosage: 5 mg, UNK
  4. METHOTREXATE [Concomitant]
     Dosage: 2.5 mg, UNK
  5. AVAPRO [Concomitant]
     Dosage: 150 mg, UNK
  6. OMEPRAZOL                          /00661201/ [Concomitant]
     Dosage: 20 mg, UNK
  7. FOLIC ACID [Concomitant]
     Dosage: 1 mg, UNK
  8. LEVOTHYROXIN [Concomitant]
     Dosage: 100 MCG, UNK
  9. ASPIRIN [Concomitant]
     Dosage: 81 mg, UNK
  10. LIDODERM [Concomitant]
     Dosage: 5 %, UNK
  11. CALCIUM [Concomitant]
     Dosage: 500 UNK, UNK

REACTIONS (2)
  - Injection site pruritus [Unknown]
  - Stomatitis [Unknown]
